FAERS Safety Report 4448387-8 (Version None)
Quarter: 2004Q3

REPORT INFORMATION
  Report Type: 
  Country: None (occurrence: None)
  Receive Date: 20040910
  Receipt Date: 20040910
  Transmission Date: 20050211
  Serious: No
  Sender: FDA-Public Use
  Company Number: None

PATIENT
  Age: 67 Year
  Sex: Female
  Weight: 77.1115 kg

DRUGS (2)
  1. FORADIL [Suspect]
     Indication: ASTHMA
     Dosage: 1 INHALATION TWICE DAY
     Route: 055
     Dates: start: 20040802, end: 20040813
  2. FORADIL [Suspect]
     Indication: CHRONIC OBSTRUCTIVE AIRWAYS DISEASE
     Dosage: 1 INHALATION TWICE DAY
     Route: 055
     Dates: start: 20040802, end: 20040813

REACTIONS (4)
  - ACTIVITIES OF DAILY LIVING IMPAIRED [None]
  - FLUID RETENTION [None]
  - KIDNEY INFECTION [None]
  - TREMOR [None]
